FAERS Safety Report 10969749 (Version 1)
Quarter: 2015Q1

REPORT INFORMATION
  Report Type: Spontaneous
  Country: GB (occurrence: GB)
  Receive Date: 20150331
  Receipt Date: 20150331
  Transmission Date: 20150721
  Serious: Yes (Other)
  Sender: FDA-Public Use
  Company Number: GB-TEVA-550138ACC

PATIENT
  Age: 68 Year
  Sex: Male
  Weight: 95 kg

DRUGS (7)
  1. LOSARTAN [Concomitant]
     Active Substance: LOSARTAN
     Dosage: 1 DOSAGE FORMS DAILY;
     Dates: start: 20141118
  2. CLOPIDOGREL [Concomitant]
     Active Substance: CLOPIDOGREL BISULFATE
     Dosage: 1 DOSAGE FORMS DAILY;
     Dates: start: 20141118
  3. SILDENAFIL. [Concomitant]
     Active Substance: SILDENAFIL
     Dosage: USE AS NEEDED
     Dates: start: 20141118
  4. ATORVASTATIN [Suspect]
     Active Substance: ATORVASTATIN
     Dosage: 1 DOSAGE FORMS DAILY; EACH NIGHT
     Dates: start: 20141118
  5. BENDROFLUMETHIAZIDE [Concomitant]
     Active Substance: BENDROFLUMETHIAZIDE
     Dosage: 1 DOSAGE FORMS DAILY; EACH MORNING
     Dates: start: 20141118
  6. WARFARIN SODIUM. [Concomitant]
     Active Substance: WARFARIN SODIUM
     Dosage: 1 DOSAGE FORMS DAILY; FOLLOW ENCL. INSTRUCTIONS
     Dates: start: 20141118
  7. BISOPROLOL [Concomitant]
     Active Substance: BISOPROLOL
     Dosage: 1 DOSAGE FORMS DAILY;
     Dates: start: 20141118

REACTIONS (1)
  - Haematuria [Recovered/Resolved]
